FAERS Safety Report 4746307-X (Version None)
Quarter: 2005Q3

REPORT INFORMATION
  Report Type: 
  Country: None (occurrence: None)
  Receive Date: 20050816
  Receipt Date: 20050816
  Transmission Date: 20060218
  Serious: Yes (Hospitalization)
  Sender: FDA-Public Use
  Company Number: None

PATIENT
  Age: 39 Year
  Sex: Female
  Weight: 92.0802 kg

DRUGS (3)
  1. PHENYTOIN [Suspect]
     Indication: CONVULSION PROPHYLAXIS
     Dosage: 100MG  BID  ORAL
     Route: 048
     Dates: start: 20050605, end: 20050702
  2. DEXAMETHASONE [Concomitant]
  3. FLUCONAZOLE [Concomitant]

REACTIONS (1)
  - STEVENS-JOHNSON SYNDROME [None]
